FAERS Safety Report 16273474 (Version 2)
Quarter: 2019Q2

REPORT INFORMATION
  Report Type: Report from Study
  Country: US (occurrence: US)
  Receive Date: 20190506
  Receipt Date: 20190603
  Transmission Date: 20190711
  Serious: Yes (Hospitalization)
  Sender: FDA-Public Use
  Company Number: US-GILEAD-2019-0405704

PATIENT
  Age: 70 Year
  Sex: Female

DRUGS (7)
  1. ALLOPURINOL. [Concomitant]
     Active Substance: ALLOPURINOL
  2. AMBRISENTAN [Suspect]
     Active Substance: AMBRISENTAN
     Indication: CONNECTIVE TISSUE DISORDER
  3. ROBAXIN [Concomitant]
     Active Substance: METHOCARBAMOL
  4. BRILINTA [Concomitant]
     Active Substance: TICAGRELOR
  5. LASIX [Concomitant]
     Active Substance: FUROSEMIDE
  6. ASPIRIN (E.C.) [Concomitant]
     Active Substance: ASPIRIN
  7. AMBRISENTAN [Suspect]
     Active Substance: AMBRISENTAN
     Indication: PULMONARY HYPERTENSION
     Dosage: 10 MG
     Route: 065

REACTIONS (2)
  - Breath sounds abnormal [Recovered/Resolved]
  - Unevaluable event [Recovered/Resolved]

NARRATIVE: CASE EVENT DATE: 20190422
